FAERS Safety Report 5075793-3 (Version None)
Quarter: 2006Q3

REPORT INFORMATION
  Report Type: 
  Country: None (occurrence: None)
  Receive Date: 20060809
  Receipt Date: 20060712
  Transmission Date: 20061208
  Serious: Yes (Other)
  Sender: FDA-Public Use
  Company Number: US-GLAXOSMITHKLINE-A0612026A

PATIENT
  Age: 72 Year
  Sex: Female
  Weight: 57.2 kg

DRUGS (5)
  1. SEREVENT [Suspect]
     Indication: ASTHMA
     Dosage: 1PUFF TWICE PER DAY
     Route: 055
     Dates: start: 20060401, end: 20060619
  2. PREDNISONE [Concomitant]
  3. NEURONTIN [Concomitant]
  4. SALSALATE [Concomitant]
  5. PREMARIN [Concomitant]

REACTIONS (5)
  - INSOMNIA [None]
  - NERVOUSNESS [None]
  - PRURITUS [None]
  - RASH [None]
  - SKIN EXFOLIATION [None]
